FAERS Safety Report 12195021 (Version 3)
Quarter: 2016Q1

REPORT INFORMATION
  Report Type: Spontaneous
  Country: GR (occurrence: GR)
  Receive Date: 20160321
  Receipt Date: 20160331
  Transmission Date: 20160526
  Serious: Yes (Other)
  Sender: FDA-Public Use
  Company Number: GR-009507513-1603GRC009017

PATIENT
  Age: 65 Year
  Sex: Female

DRUGS (4)
  1. DIOVAN [Concomitant]
     Active Substance: VALSARTAN
     Indication: HYPERTENSION
     Dosage: 1 TABLET,EVERY MORNING
  2. ZARATOR [Concomitant]
     Active Substance: ATORVASTATIN CALCIUM
     Indication: HYPERLIPIDAEMIA
     Dosage: UNK
  3. NASONEX [Suspect]
     Active Substance: MOMETASONE FUROATE
     Indication: NASAL CONGESTION
     Dosage: 2 TIMES PER DAY
     Dates: start: 20160316, end: 201603
  4. NASONEX [Suspect]
     Active Substance: MOMETASONE FUROATE
     Indication: NASOPHARYNGITIS

REACTIONS (4)
  - Heart rate increased [Unknown]
  - Blood pressure diastolic increased [Recovering/Resolving]
  - Hypertensive crisis [Recovering/Resolving]
  - Off label use [Unknown]

NARRATIVE: CASE EVENT DATE: 20160316
